FAERS Safety Report 10112298 (Version 2)
Quarter: 2014Q4

REPORT INFORMATION
  Report Type: Spontaneous
  Country: IT (occurrence: IT)
  Receive Date: 20140425
  Receipt Date: 20141016
  Transmission Date: 20150528
  Serious: Yes (Hospitalization)
  Sender: FDA-Public Use
  Company Number: IT-009507513-1404ITA012770

PATIENT
  Age: 52 Year
  Sex: Female

DRUGS (12)
  1. MOMETASONE FUROATE. [Suspect]
     Active Substance: MOMETASONE FUROATE
     Indication: PHARYNGITIS
     Dosage: UNK
     Route: 055
     Dates: start: 20140210, end: 20140214
  2. TACHIFLUDEC [Suspect]
     Active Substance: ACETAMINOPHEN\ASCORBIC ACID\PHENYLEPHRINE
     Indication: PYREXIA
  3. AUGMENTIN [Suspect]
     Active Substance: AMOXICILLIN\CLAVULANATE POTASSIUM
     Indication: PHARYNGITIS
     Dosage: STRENGTH: 875 MG + 125MG
     Route: 048
     Dates: start: 20140213, end: 20140215
  4. TACHIFLUDEC [Suspect]
     Active Substance: ACETAMINOPHEN\ASCORBIC ACID\PHENYLEPHRINE
     Indication: PHARYNGITIS
     Dosage: 2 DF, QD
     Route: 048
     Dates: start: 20140210, end: 20140215
  5. MOMETASONE FUROATE. [Suspect]
     Active Substance: MOMETASONE FUROATE
     Indication: PYREXIA
  6. AUGMENTIN [Suspect]
     Active Substance: AMOXICILLIN\CLAVULANATE POTASSIUM
     Indication: PYREXIA
  7. TANTUM VERDE [Suspect]
     Active Substance: BENZYDAMINE HYDROCHLORIDE
     Indication: PHARYNGITIS
     Dosage: UNK
     Route: 002
     Dates: end: 20140214
  8. ASPIRINA [Suspect]
     Active Substance: ASPIRIN
     Indication: PHARYNGITIS
     Dosage: 1 DF, QD
     Dates: start: 20140214, end: 20140215
  9. ROCEFIN [Suspect]
     Active Substance: CEFTRIAXONE SODIUM
     Indication: PHARYNGITIS
     Dosage: 1 DF, QD
     Route: 030
     Dates: start: 20140210, end: 20140213
  10. ROCEFIN [Suspect]
     Active Substance: CEFTRIAXONE SODIUM
     Indication: PYREXIA
  11. TANTUM VERDE [Suspect]
     Active Substance: BENZYDAMINE HYDROCHLORIDE
     Indication: PYREXIA
  12. ASPIRINA [Suspect]
     Active Substance: ASPIRIN
     Indication: PYREXIA

REACTIONS (4)
  - Erythema [Recovering/Resolving]
  - Adverse drug reaction [Recovering/Resolving]
  - Pruritus [Recovering/Resolving]
  - Rash generalised [Recovering/Resolving]

NARRATIVE: CASE EVENT DATE: 20140215
